FAERS Safety Report 4670118-7 (Version None)
Quarter: 2005Q2

REPORT INFORMATION
  Report Type: 
  Country: None (occurrence: None)
  Receive Date: 20050520
  Receipt Date: 20050512
  Transmission Date: 20051028
  Serious: Yes (Hospitalization, Other)
  Sender: FDA-Public Use
  Company Number: 2005074381

PATIENT
  Sex: Male
  Weight: 108.8633 kg

DRUGS (10)
  1. NORVASC [Suspect]
     Indication: ILL-DEFINED DISORDER
     Dosage: 5 MG (5 MG, QD INTERVAL:EVERY DAY), ORAL
     Route: 048
  2. ASPIRIN [Suspect]
     Indication: ILL-DEFINED DISORDER
  3. ZESTRIL [Concomitant]
  4. ATENOLOL [Concomitant]
  5. DURAGESIC (FENTANYL) [Concomitant]
  6. VITAMIN B12 (VITAMIN B12) [Concomitant]
  7. FOLIC ACID [Concomitant]
  8. MULTIVITAMIN [Concomitant]
  9. ULTRAM [Concomitant]
  10. TYLENOL [Concomitant]

REACTIONS (8)
  - ANAEMIA [None]
  - CHEST PAIN [None]
  - CONTUSION [None]
  - HAEMATOCHEZIA [None]
  - INTERVERTEBRAL DISC DISORDER [None]
  - MUSCULOSKELETAL DISCOMFORT [None]
  - PAIN [None]
  - SPINAL COLUMN STENOSIS [None]
